FAERS Safety Report 4814246-1 (Version None)
Quarter: 2005Q4

REPORT INFORMATION
  Report Type: 
  Country: None (occurrence: None)
  Receive Date: 20051028
  Receipt Date: 20050725
  Transmission Date: 20060501
  Serious: No
  Sender: FDA-Public Use
  Company Number: US-GLAXOSMITHKLINE-A0567580A

PATIENT
  Sex: Female

DRUGS (7)
  1. ADVAIR DISKUS 100/50 [Suspect]
     Indication: ASTHMA
     Route: 055
     Dates: start: 20010101
  2. AVAPRO [Concomitant]
  3. NEXIUM [Concomitant]
  4. LIPITOR [Concomitant]
  5. AMBIEN [Concomitant]
  6. DIPHENOXYLATE [Concomitant]
  7. KEFLEX [Concomitant]

REACTIONS (2)
  - DYSGEUSIA [None]
  - DYSPNOEA [None]
